FAERS Safety Report 16836996 (Version 1)
Quarter: 2019Q3

REPORT INFORMATION
  Report Type: Spontaneous
  Country: CH (occurrence: CH)
  Receive Date: 20190923
  Receipt Date: 20190923
  Transmission Date: 20191005
  Serious: No
  Sender: FDA-Public Use
  Company Number: CH-NOVEN PHARMACEUTICALS, INC.-CH2018000555

PATIENT

DRUGS (2)
  1. ESTRADIOL/NORETHISTERONE ACETATE [Suspect]
     Active Substance: ESTRADIOL\NORETHINDRONE ACETATE
     Indication: HOT FLUSH
     Dosage: 1/2 PATCH, 2/WK
     Route: 062
     Dates: start: 201711
  2. ESTRADIOL/NORETHISTERONE ACETATE [Suspect]
     Active Substance: ESTRADIOL\NORETHINDRONE ACETATE
     Indication: NERVOUSNESS
     Dosage: 50/140 OT, UNKNOWN
     Route: 062
     Dates: start: 2011

REACTIONS (3)
  - Drug intolerance [Unknown]
  - Nervousness [Unknown]
  - Hot flush [Unknown]
